FAERS Safety Report 4436186-2 (Version None)
Quarter: 2004Q3

REPORT INFORMATION
  Report Type: 
  Country: None (occurrence: None)
  Receive Date: 20040830
  Receipt Date: 20040510
  Transmission Date: 20050211
  Serious: No
  Sender: FDA-Public Use
  Company Number: US-BRISTOL-MYERS SQUIBB COMPANY-12583167

PATIENT
  Age: 56 Year
  Sex: Male
  Weight: 86 kg

DRUGS (5)
  1. ERBITUX [Suspect]
     Indication: COLON CANCER
     Route: 042
     Dates: start: 20040426, end: 20040426
  2. BENADRYL [Concomitant]
     Indication: PREMEDICATION
     Route: 042
     Dates: start: 20040426, end: 20040426
  3. DECADRON [Concomitant]
     Indication: PREMEDICATION
     Dates: start: 20040426, end: 20040426
  4. KYTRIL [Concomitant]
     Indication: PREMEDICATION
     Dates: start: 20040426, end: 20040426
  5. PEPCID [Concomitant]
     Indication: PREMEDICATION
     Dates: start: 20040426, end: 20040426

REACTIONS (1)
  - RASH [None]
